FAERS Safety Report 15723500 (Version 1)
Quarter: 2018Q4

REPORT INFORMATION
  Report Type: Spontaneous
  Country: US (occurrence: US)
  Receive Date: 20181213
  Receipt Date: 20181213
  Transmission Date: 20190205
  Serious: No
  Sender: FDA-Public Use
  Company Number: None

PATIENT

DRUGS (1)
  1. ROCURONIUM [Suspect]
     Active Substance: ROCURONIUM BROMIDE

REACTIONS (3)
  - Product packaging quantity issue [None]
  - Liquid product physical issue [None]
  - Product label confusion [None]

NARRATIVE: CASE EVENT DATE: 20181213
